FAERS Safety Report 7025174-8 (Version None)
Quarter: 2010Q4

REPORT INFORMATION
  Report Type: 
  Country: None (occurrence: None)
  Receive Date: 20101001
  Receipt Date: 20100917
  Transmission Date: 20110411
  Serious: Yes (Other)
  Sender: FDA-Public Use
  Company Number: AU-GENENTECH-307088

PATIENT
  Sex: Female

DRUGS (2)
  1. LUCENTIS [Suspect]
     Indication: MACULAR DEGENERATION
     Dosage: 0.05 ML, UNK
     Route: 031
     Dates: start: 20070801
  2. LUCENTIS [Suspect]
     Route: 031

REACTIONS (3)
  - BLOOD PRESSURE INCREASED [None]
  - VITREOUS DETACHMENT [None]
  - VITREOUS FLOATERS [None]
